FAERS Safety Report 5043458-X (Version None)
Quarter: 2006Q3

REPORT INFORMATION
  Report Type: 
  Country: None (occurrence: None)
  Receive Date: 20060705
  Receipt Date: 20060628
  Transmission Date: 20061208
  Serious: Yes (Life-Threatening, Hospitalization)
  Sender: FDA-Public Use
  Company Number: DE-BOEHRINGER INGELHEIM PHARMACEUTICALS, INC.-2006-DE-03291DE

PATIENT
  Sex: Male
  Weight: 73 kg

DRUGS (4)
  1. MOBIC [Suspect]
     Indication: PSORIASIS
  2. ENBREL [Concomitant]
     Indication: PSORIASIS
  3. METHOTREXATE [Concomitant]
     Indication: PSORIASIS
  4. PREDNISOLONE [Concomitant]
     Indication: PSORIASIS

REACTIONS (3)
  - ACUTE MYOCARDIAL INFARCTION [None]
  - CORONARY ARTERY DISEASE [None]
  - HYPERCHOLESTEROLAEMIA [None]
